FAERS Safety Report 20923990 (Version 2)
Quarter: 2022Q2

REPORT INFORMATION
  Report Type: Spontaneous
  Country: CH (occurrence: CH)
  Receive Date: 20220607
  Receipt Date: 20220607
  Transmission Date: 20220721
  Serious: Yes (Other)
  Sender: FDA-Public Use
  Company Number: CH-PFIZER INC-202200761911

PATIENT
  Age: 71 Year
  Sex: Female

DRUGS (14)
  1. METHOTREXATE SODIUM [Interacting]
     Active Substance: METHOTREXATE SODIUM
     Indication: Rheumatoid arthritis
     Dosage: 10 MG, WEEKLY
     Route: 058
  2. NIMESULIDE [Interacting]
     Active Substance: NIMESULIDE
  3. ASPIRIN [Concomitant]
     Active Substance: ASPIRIN
  4. AMLODIPINE BESYLATE [Concomitant]
     Active Substance: AMLODIPINE BESYLATE
  5. CANDESARTAN [Concomitant]
     Active Substance: CANDESARTAN
  6. ROSUVASTATIN CALCIUM [Concomitant]
     Active Substance: ROSUVASTATIN CALCIUM
  7. LORAZEPAM [Concomitant]
     Active Substance: LORAZEPAM
  8. ALLOPURINOL [Concomitant]
     Active Substance: ALLOPURINOL
  9. LEVOTHYROXINE [Concomitant]
     Active Substance: LEVOTHYROXINE
  10. NALOXONE HYDROCHLORIDE\OXYCODONE HYDROCHLORIDE [Concomitant]
     Active Substance: NALOXONE HYDROCHLORIDE\OXYCODONE HYDROCHLORIDE
  11. CEFTRIAXONE SODIUM [Concomitant]
     Active Substance: CEFTRIAXONE SODIUM
     Indication: Cellulitis
  12. CEFTRIAXONE SODIUM [Concomitant]
     Active Substance: CEFTRIAXONE SODIUM
     Indication: COVID-19 pneumonia
  13. DALTEPARIN [Concomitant]
     Active Substance: DALTEPARIN
     Indication: Thrombosis prophylaxis
  14. DEXAMETHASONE [Concomitant]
     Active Substance: DEXAMETHASONE

REACTIONS (5)
  - Renal impairment [Unknown]
  - Renal injury [Unknown]
  - Poisoning [Unknown]
  - Platelet count decreased [Recovered/Resolved]
  - Drug interaction [Unknown]
